FAERS Safety Report 4510075-7 (Version None)
Quarter: 2004Q4

REPORT INFORMATION
  Report Type: 
  Country: None (occurrence: None)
  Receive Date: 20041124
  Receipt Date: 20041119
  Transmission Date: 20050328
  Serious: No
  Sender: FDA-Public Use
  Company Number: PHEH2004US12562

PATIENT
  Age: 14 Year
  Sex: Female

DRUGS (1)
  1. TRILEPTAL [Suspect]
     Dosage: 450 MG, BID
     Route: 048
     Dates: start: 20030101

REACTIONS (2)
  - BLOOD URINE [None]
  - PROTEIN URINE PRESENT [None]
